FAERS Safety Report 9425316 (Version 2)
Quarter: 2013Q3

REPORT INFORMATION
  Report Type: Report from Study
  Country: CZ (occurrence: CZ)
  Receive Date: 20130729
  Receipt Date: 20130903
  Transmission Date: 20140515
  Serious: Yes (Death)
  Sender: FDA-Public Use
  Company Number: PHHO2013CZ009758

PATIENT
  Age: 73 Year
  Sex: Male

DRUGS (4)
  1. MYCOPHENOLIC ACID [Suspect]
     Dosage: UNK
     Dates: start: 20060907
  2. BELATACEPT [Suspect]
     Indication: RENAL TRANSPLANT
     Dosage: UNK
     Route: 042
     Dates: start: 20060907
  3. BELATACEPT [Suspect]
     Dosage: UNK
     Dates: start: 20130507
  4. PREDNISONE [Suspect]
     Dosage: UNK UKN, UNK
     Dates: start: 20060909, end: 20130602

REACTIONS (1)
  - Bronchopneumonia [Fatal]
